FAERS Safety Report 6574566-X (Version None)
Quarter: 2010Q1

REPORT INFORMATION
  Report Type: 
  Country: None (occurrence: None)
  Receive Date: 20100209
  Receipt Date: 20091209
  Transmission Date: 20100710
  Serious: No
  Sender: FDA-Public Use
  Company Number: A0834296A

PATIENT
  Age: 64 Year
  Sex: Female

DRUGS (4)
  1. PAXIL [Suspect]
     Indication: DEPRESSION
     Dosage: 25MG PER DAY
     Route: 048
     Dates: start: 20091125
  2. EVISTA [Concomitant]
  3. AVAPRO [Concomitant]
  4. EFFEXOR [Concomitant]

REACTIONS (1)
  - RASH [None]
